FAERS Safety Report 20014026 (Version 4)
Quarter: 2021Q4

REPORT INFORMATION
  Report Type: Spontaneous
  Country: US (occurrence: US)
  Receive Date: 20211029
  Receipt Date: 20211216
  Transmission Date: 20220303
  Serious: No
  Sender: FDA-Public Use
  Company Number: US-JNJFOC-20211045412

PATIENT
  Age: 42 Year
  Sex: Male

DRUGS (24)
  1. RISPERDAL CONSTA [Suspect]
     Active Substance: RISPERIDONE
     Indication: Product used for unknown indication
     Route: 030
  2. RISPERDAL CONSTA [Suspect]
     Active Substance: RISPERIDONE
     Route: 058
  3. RISPERDAL CONSTA [Suspect]
     Active Substance: RISPERIDONE
  4. RISPERDAL CONSTA [Suspect]
     Active Substance: RISPERIDONE
  5. RISPERDAL CONSTA [Suspect]
     Active Substance: RISPERIDONE
  6. RISPERDAL CONSTA [Suspect]
     Active Substance: RISPERIDONE
  7. RISPERDAL CONSTA [Suspect]
     Active Substance: RISPERIDONE
  8. RISPERDAL CONSTA [Suspect]
     Active Substance: RISPERIDONE
  9. RISPERDAL CONSTA [Suspect]
     Active Substance: RISPERIDONE
  10. RISPERDAL CONSTA [Suspect]
     Active Substance: RISPERIDONE
  11. RISPERDAL CONSTA [Suspect]
     Active Substance: RISPERIDONE
  12. RISPERDAL CONSTA [Suspect]
     Active Substance: RISPERIDONE
  13. RISPERDAL CONSTA [Suspect]
     Active Substance: RISPERIDONE
     Indication: Product used for unknown indication
     Route: 030
  14. RISPERDAL CONSTA [Suspect]
     Active Substance: RISPERIDONE
  15. RISPERDAL CONSTA [Suspect]
     Active Substance: RISPERIDONE
  16. RISPERDAL CONSTA [Suspect]
     Active Substance: RISPERIDONE
  17. RISPERDAL CONSTA [Suspect]
     Active Substance: RISPERIDONE
  18. RISPERDAL CONSTA [Suspect]
     Active Substance: RISPERIDONE
  19. RISPERDAL CONSTA [Suspect]
     Active Substance: RISPERIDONE
  20. RISPERDAL CONSTA [Suspect]
     Active Substance: RISPERIDONE
  21. RISPERDAL CONSTA [Suspect]
     Active Substance: RISPERIDONE
  22. RISPERDAL CONSTA [Suspect]
     Active Substance: RISPERIDONE
  23. RISPERDAL CONSTA [Suspect]
     Active Substance: RISPERIDONE
  24. RISPERDAL CONSTA [Suspect]
     Active Substance: RISPERIDONE

REACTIONS (2)
  - Inappropriate schedule of product administration [Unknown]
  - Device occlusion [Unknown]

NARRATIVE: CASE EVENT DATE: 20211020
